FAERS Safety Report 6712559-X (Version None)
Quarter: 2010Q2

REPORT INFORMATION
  Report Type: 
  Country: None (occurrence: None)
  Receive Date: 20100505
  Receipt Date: 20100505
  Transmission Date: 20101027
  Serious: No
  Sender: FDA-Public Use
  Company Number: None

PATIENT
  Age: 70 Year
  Sex: Female

DRUGS (1)
  1. TRAZODONE HCL [Suspect]
     Indication: SLEEP DISORDER THERAPY
     Dosage: 150 MG ONE AT BEDTIME
     Dates: start: 20100420

REACTIONS (6)
  - BURNING SENSATION [None]
  - CHEST DISCOMFORT [None]
  - CHILLS [None]
  - CONSTIPATION [None]
  - DIZZINESS [None]
  - VISION BLURRED [None]
